FAERS Safety Report 24846010 (Version 1)
Quarter: 2025Q1

REPORT INFORMATION
  Report Type: Spontaneous
  Country: JP (occurrence: JP)
  Receive Date: 20250115
  Receipt Date: 20250115
  Transmission Date: 20250408
  Serious: Yes (Other)
  Sender: FERRING
  Company Number: JP-ferring-EVA202500045FERRINGPH

PATIENT

DRUGS (4)
  1. NOCDURNA [Suspect]
     Active Substance: DESMOPRESSIN ACETATE
     Indication: Product used for unknown indication
     Route: 048
  2. FUROSEMIDE [Suspect]
     Active Substance: FUROSEMIDE
     Indication: Dyspnoea
     Route: 065
  3. FUROSEMIDE [Suspect]
     Active Substance: FUROSEMIDE
     Indication: Cardiac dysfunction
  4. IMIDAFENACIN [Concomitant]
     Active Substance: IMIDAFENACIN
     Route: 065

REACTIONS (6)
  - Cardiac failure [Unknown]
  - Treatment noncompliance [Unknown]
  - Underdose [Unknown]
  - Product use issue [Unknown]
  - Contraindicated product prescribed [Unknown]
  - Labelled drug-drug interaction medication error [Unknown]
